FAERS Safety Report 17769433 (Version 2)
Quarter: 2020Q2

REPORT INFORMATION
  Report Type: Spontaneous
  Country: US (occurrence: US)
  Receive Date: 20200512
  Receipt Date: 20200529
  Transmission Date: 20200714
  Serious: No
  Sender: FDA-Public Use
  Company Number: US-BAUSCH-BL-2020-011615

PATIENT
  Sex: Female

DRUGS (2)
  1. LUMIFY [Suspect]
     Active Substance: BRIMONIDINE TARTRATE
     Indication: EYE DISORDER
     Dosage: STARTED 3 TO 4 WEEKS AGO, ONE DROP 2 TIMES A DAY (8 HOURS APART) IN EACH EYE
     Route: 047
     Dates: start: 202003, end: 20200414
  2. LUMIFY [Suspect]
     Active Substance: BRIMONIDINE TARTRATE
     Indication: PRODUCT USE IN UNAPPROVED INDICATION

REACTIONS (2)
  - Ocular hyperaemia [Not Recovered/Not Resolved]
  - Product use in unapproved indication [Unknown]

NARRATIVE: CASE EVENT DATE: 202003
